FAERS Safety Report 12307334 (Version 1)
Quarter: 2016Q2

REPORT INFORMATION
  Report Type: Spontaneous
  Country: US (occurrence: US)
  Receive Date: 20160426
  Receipt Date: 20160426
  Transmission Date: 20160815
  Serious: No
  Sender: FDA-Public Use
  Company Number: US-JAZZ-2015-US-000378

PATIENT
  Sex: Male

DRUGS (1)
  1. LUVOX CR [Suspect]
     Active Substance: FLUVOXAMINE MALEATE
     Indication: OBSESSIVE-COMPULSIVE DISORDER
     Dosage: 450 MG EVERY NIGHT AT BEDTIME
     Route: 048

REACTIONS (1)
  - Prescribed overdose [Unknown]
